FAERS Safety Report 14039233 (Version 1)
Quarter: 2017Q4

REPORT INFORMATION
  Report Type: Spontaneous
  Country: US (occurrence: US)
  Receive Date: 20171004
  Receipt Date: 20171004
  Transmission Date: 20180321
  Serious: No
  Sender: FDA-Public Use
  Company Number: US-INDIVIOR LIMITED-INDV-099046-2017

PATIENT
  Age: 36 Year
  Sex: Female

DRUGS (1)
  1. SUBOXONE [Suspect]
     Active Substance: BUPRENORPHINE HYDROCHLORIDE\NALOXONE HYDROCHLORIDE
     Indication: PRODUCT USED FOR UNKNOWN INDICATION
     Dosage: UNK
     Route: 065
     Dates: start: 201502

REACTIONS (9)
  - Dental caries [Unknown]
  - Tooth fracture [Unknown]
  - Tooth injury [Unknown]
  - Intentional underdose [Recovered/Resolved]
  - Dry mouth [Unknown]
  - Toothache [Unknown]
  - Teeth brittle [Unknown]
  - Tooth loss [Unknown]
  - Drug dependence [Unknown]

NARRATIVE: CASE EVENT DATE: 20150620
